FAERS Safety Report 6283645-6 (Version None)
Quarter: 2009Q3

REPORT INFORMATION
  Report Type: 
  Country: None (occurrence: None)
  Receive Date: 20090724
  Receipt Date: 20090716
  Transmission Date: 20100115
  Serious: Yes (Hospitalization)
  Sender: FDA-Public Use
  Company Number: PHHY2009PL30020

PATIENT
  Age: 19 Year
  Sex: Female

DRUGS (1)
  1. CARBAMAZEPINE [Suspect]
     Indication: BORDERLINE PERSONALITY DISORDER
     Dosage: UNK

REACTIONS (4)
  - HYPERSENSITIVITY [None]
  - MEASLES [None]
  - MUMPS [None]
  - UPPER RESPIRATORY TRACT INFECTION [None]
